FAERS Safety Report 13314466 (Version 1)
Quarter: 2017Q1

REPORT INFORMATION
  Report Type: Spontaneous
  Country: FR (occurrence: FR)
  Receive Date: 20170309
  Receipt Date: 20170309
  Transmission Date: 20170428
  Serious: Yes (Other)
  Sender: FDA-Public Use
  Company Number: FR-BAYER-2017-023950

PATIENT
  Age: 64 Year
  Sex: Male
  Weight: 84 kg

DRUGS (6)
  1. REGORAFENIB [Suspect]
     Active Substance: REGORAFENIB
     Indication: RECTAL ADENOCARCINOMA
     Dosage: 40 MG, QID
     Dates: start: 201307
  2. REGORAFENIB [Suspect]
     Active Substance: REGORAFENIB
     Indication: RECTAL ADENOCARCINOMA
     Dosage: 40 MG, QID
     Dates: start: 20120509
  3. REGORAFENIB [Suspect]
     Active Substance: REGORAFENIB
     Indication: RECTAL ADENOCARCINOMA
     Dosage: 40 MG, QID
  4. AMLOR [Concomitant]
     Active Substance: AMLODIPINE BESYLATE
     Indication: HYPERTENSION
  5. DI-HYDAN [Concomitant]
     Active Substance: PHENYTOIN
     Indication: EPILEPSY
  6. REGORAFENIB [Suspect]
     Active Substance: REGORAFENIB
     Indication: RECTAL ADENOCARCINOMA
     Dosage: 40 MG, TID

REACTIONS (8)
  - Weight decreased [None]
  - Dysphonia [None]
  - Diarrhoea [None]
  - Intestinal obstruction [None]
  - Hepatocellular injury [None]
  - Asthenia [None]
  - Rectal cancer metastatic [None]
  - Vomiting [None]
